FAERS Safety Report 8230485-4 (Version None)
Quarter: 2012Q1

REPORT INFORMATION
  Report Type: 
  Country: None (occurrence: None)
  Receive Date: 20120323
  Receipt Date: 20120316
  Transmission Date: 20120608
  Serious: Yes (Other)
  Sender: FDA-Public Use
  Company Number: JP-VERTEX PHARMACEUTICALS INC.-AE-2012-004044

PATIENT
  Age: 60 Year
  Sex: Male

DRUGS (6)
  1. REBETOL [Concomitant]
     Route: 048
     Dates: start: 20120309, end: 20120313
  2. PEGINTERFERON ALFA-2A [Concomitant]
     Route: 058
     Dates: start: 20120309, end: 20120313
  3. ENALAPRIL MALEATE [Concomitant]
  4. TELAVIC (TELAPREVIR) [Suspect]
     Route: 048
     Dates: start: 20120309, end: 20120313
  5. ALLOPURINOL [Concomitant]
  6. DEPAS [Concomitant]

REACTIONS (1)
  - RENAL IMPAIRMENT [None]
